FAERS Safety Report 7587272-X (Version None)
Quarter: 2011Q3

REPORT INFORMATION
  Report Type: 
  Country: None (occurrence: None)
  Receive Date: 20110701
  Receipt Date: 20110628
  Transmission Date: 20111222
  Serious: Yes (Hospitalization)
  Sender: FDA-Public Use
  Company Number: DE-ELI_LILLY_AND_COMPANY-DE201105001248

PATIENT
  Sex: Male

DRUGS (7)
  1. LANTUS [Concomitant]
     Dosage: 10 U, UNKNOWN
     Route: 058
  2. OMEPRAZOLE [Concomitant]
  3. LANTUS [Concomitant]
     Dosage: 20 U, UNKNOWN
     Route: 058
     Dates: start: 20110318
  4. BISOPROLOL FUMARATE [Concomitant]
  5. BYETTA [Suspect]
     Indication: DIABETES MELLITUS
     Dosage: 10 UG, QD
     Route: 058
     Dates: start: 20110301, end: 20110601
  6. SIMVASTATIN [Concomitant]
  7. METFORMIN HCL [Concomitant]
     Dosage: 1000 MG, UNK
     Route: 048

REACTIONS (2)
  - OFF LABEL USE [None]
  - BLOOD GLUCOSE INCREASED [None]
